FAERS Safety Report 14519501 (Version 1)
Quarter: 2018Q1

REPORT INFORMATION
  Report Type: Spontaneous
  Country: BR (occurrence: BR)
  Receive Date: 20180212
  Receipt Date: 20180212
  Transmission Date: 20180509
  Serious: Yes (Life-Threatening, Other)
  Sender: FDA-Public Use
  Company Number: PHHY2018BR023152

PATIENT
  Sex: Female
  Weight: 84 kg

DRUGS (1)
  1. ACLASTA [Suspect]
     Active Substance: ZOLEDRONIC ACID
     Indication: OSTEOPOROSIS
     Dosage: 1 DF, UNK
     Route: 042

REACTIONS (14)
  - Abdominal pain [Unknown]
  - Vomiting [Unknown]
  - Pain [Unknown]
  - Neck pain [Unknown]
  - Dyspnoea [Unknown]
  - Feeling abnormal [Unknown]
  - Urinary tract infection [Unknown]
  - Burning sensation [Unknown]
  - Pyrexia [Unknown]
  - Adverse drug reaction [Unknown]
  - Chest pain [Unknown]
  - Tremor [Unknown]
  - Joint lock [Unknown]
  - Dry mouth [Unknown]
